FAERS Safety Report 10149718 (Version 1)
Quarter: 2014Q2

REPORT INFORMATION
  Report Type: Spontaneous
  Country: CN (occurrence: None)
  Receive Date: 20140430
  Receipt Date: 20140430
  Transmission Date: 20141212
  Serious: Yes (Hospitalization)
  Sender: FDA-Public Use
  Company Number: ANI_2014_1364890

PATIENT
  Age: 62 Year
  Sex: Male

DRUGS (5)
  1. RISPERIDONE (NON-SPECIFIC) [Suspect]
     Indication: BIPOLAR II DISORDER
     Dates: start: 201206, end: 201207
  2. BUPROPION (NON-SPECIFIC) [Suspect]
     Indication: BIPOLAR II DISORDER
     Route: 048
     Dates: start: 201206
  3. LAMOTRIGINE 75MG [Concomitant]
  4. QUETIAPINE 200 MG [Concomitant]
  5. ESCITALOPRAM 10MG AUROBIUDO PHARMA [Concomitant]

REACTIONS (11)
  - Drug interaction [None]
  - Delirium [None]
  - Dry mouth [None]
  - Dry skin [None]
  - Abdominal discomfort [None]
  - Constipation [None]
  - Confusional state [None]
  - Disorientation [None]
  - Hallucination, visual [None]
  - Agitation [None]
  - Electroencephalogram abnormal [None]
